FAERS Safety Report 9559825 (Version 1)
Quarter: 2013Q3

REPORT INFORMATION
  Report Type: Spontaneous
  Country: US (occurrence: US)
  Receive Date: 20130927
  Receipt Date: 20130927
  Transmission Date: 20140515
  Serious: Yes (Other)
  Sender: FDA-Public Use
  Company Number: US-SANOFI-AVENTIS-2013SA094777

PATIENT
  Age: 47 Year
  Sex: Male

DRUGS (1)
  1. SELSUN BLUE MEDICATED SHAMPOO [Suspect]
     Route: 065

REACTIONS (4)
  - Chemical injury [Unknown]
  - Burning sensation [Unknown]
  - Condition aggravated [Unknown]
  - Swelling [Unknown]
